FAERS Safety Report 7540381-3 (Version None)
Quarter: 2011Q2

REPORT INFORMATION
  Report Type: 
  Country: None (occurrence: None)
  Receive Date: 20110610
  Receipt Date: 20110608
  Transmission Date: 20111010
  Serious: Yes (Life-Threatening)
  Sender: FDA-Public Use
  Company Number: NL-MERCK-1106NLD00004

PATIENT
  Age: 46 Year
  Sex: Female

DRUGS (7)
  1. ZOCOR [Suspect]
     Route: 048
     Dates: start: 20110327, end: 20110403
  2. LITHIUM CARBONATE [Concomitant]
     Route: 048
  3. LEVOTHYROXINE SODIUM [Concomitant]
     Route: 065
  4. AMITRIPTYLINE HYDROCHLORIDE [Concomitant]
     Route: 048
  5. CLOMIPRAMINE HYDROCHLORIDE [Concomitant]
     Route: 048
  6. CLOZAPINE [Concomitant]
     Route: 048
  7. RISPERIDONE [Concomitant]
     Route: 048

REACTIONS (2)
  - SUICIDAL IDEATION [None]
  - DEPRESSION [None]
